FAERS Safety Report 22389985 (Version 1)
Quarter: 2023Q2

REPORT INFORMATION
  Report Type: Spontaneous
  Country: US (occurrence: None)
  Receive Date: 20230531
  Receipt Date: 20230531
  Transmission Date: 20230721
  Serious: No
  Sender: FDA-Public Use
  Company Number: None

PATIENT
  Age: 51 Year
  Sex: Male
  Weight: 80.74 kg

DRUGS (1)
  1. ADBRY [Suspect]
     Active Substance: TRALOKINUMAB-LDRM
     Indication: Dermatitis atopic
     Dosage: INJECT 600MG (4 SYRINGES) SUBCUTANEOUSLY ON DAY 1, THEN 300MG (2 SYRINGES) EVERY  2 WEEKS
     Dates: start: 202204

REACTIONS (1)
  - Illness [None]
